FAERS Safety Report 9174816 (Version 5)
Quarter: 2013Q4

REPORT INFORMATION
  Report Type: Spontaneous
  Country: US (occurrence: US)
  Receive Date: 20130320
  Receipt Date: 20131231
  Transmission Date: 20140711
  Serious: Yes (Hospitalization, Disabling, Other)
  Sender: FDA-Public Use
  Company Number: US-009507513-1303USA008922

PATIENT
  Sex: Female
  Weight: 102.4 kg

DRUGS (1)
  1. NUVARING [Suspect]
     Indication: CONTRACEPTION
     Dosage: UNK
     Route: 067
     Dates: start: 201104, end: 20110504

REACTIONS (14)
  - Pulmonary embolism [Recovered/Resolved with Sequelae]
  - Deep vein thrombosis [Recovered/Resolved with Sequelae]
  - Oedema [Unknown]
  - Chest pain [Unknown]
  - Local swelling [Not Recovered/Not Resolved]
  - Dyspnoea [Not Recovered/Not Resolved]
  - Productive cough [Unknown]
  - Balance disorder [Unknown]
  - Contusion [Unknown]
  - Anxiety [Unknown]
  - Headache [Unknown]
  - Night sweats [Unknown]
  - Arthralgia [Unknown]
  - Nephrolithiasis [Unknown]
